FAERS Safety Report 18247618 (Version 2)
Quarter: 2020Q3

REPORT INFORMATION
  Report Type: Spontaneous
  Country: US (occurrence: US)
  Receive Date: 20200909
  Receipt Date: 20200925
  Transmission Date: 20201103
  Serious: Yes (Other)
  Sender: FDA-Public Use
  Company Number: US-HORIZON-RAV-0297-2020

PATIENT
  Age: 7 Year
  Sex: Male

DRUGS (3)
  1. ETHOSUXIMIDE. [Concomitant]
     Active Substance: ETHOSUXIMIDE
     Indication: SEIZURE
     Dosage: 250MG BID, INCREASED TO 325MG BID
  2. RAVICTI [Suspect]
     Active Substance: GLYCEROL PHENYLBUTYRATE
     Indication: ARGININOSUCCINATE LYASE DEFICIENCY
     Dosage: 2.3ML TID
     Route: 048
     Dates: start: 20171121
  3. L?ARGININE [Concomitant]
     Active Substance: ARGININE

REACTIONS (2)
  - Petit mal epilepsy [Not Recovered/Not Resolved]
  - Condition aggravated [Not Recovered/Not Resolved]
